FAERS Safety Report 25099172 (Version 1)
Quarter: 2025Q1

REPORT INFORMATION
  Report Type: Spontaneous
  Country: US (occurrence: US)
  Receive Date: 20250320
  Receipt Date: 20250320
  Transmission Date: 20250408
  Serious: No
  Sender: TAKEDA
  Company Number: US-TAKEDA-2025TUS028630

PATIENT
  Sex: Female

DRUGS (2)
  1. ENTYVIO [Suspect]
     Active Substance: VEDOLIZUMAB
     Indication: Product used for unknown indication
     Dosage: 108 MILLIGRAM, Q2WEEKS
  2. ENTYVIO [Suspect]
     Active Substance: VEDOLIZUMAB

REACTIONS (4)
  - Injection site swelling [Unknown]
  - Urticaria [Unknown]
  - Injection site pruritus [Unknown]
  - Injection site reaction [Unknown]
